FAERS Safety Report 7564532-X (Version None)
Quarter: 2011Q2

REPORT INFORMATION
  Report Type: 
  Country: None (occurrence: None)
  Receive Date: 20110622
  Receipt Date: 20100802
  Transmission Date: 20111010
  Serious: Yes (Other)
  Sender: FDA-Public Use
  Company Number: US-MYLANLABS-2010S1008358

PATIENT
  Age: 58 Year
  Sex: Female
  Weight: 80.83 kg

DRUGS (17)
  1. CLOZAPINE [Suspect]
     Route: 048
     Dates: start: 20100511
  2. VENTOLIN HFA [Concomitant]
  3. BISACODYL [Concomitant]
  4. LEVOTHYROXINE SODIUM [Concomitant]
  5. FLUPHENAZINE [Concomitant]
  6. ADVAIR DISKUS 100/50 [Concomitant]
  7. CLOZAPINE [Suspect]
     Route: 048
     Dates: end: 20100506
  8. ISOSORBIDE [Concomitant]
  9. DOCUSATE [Concomitant]
  10. POTASSIUM SULFATE [Concomitant]
  11. CLOZAPINE [Suspect]
     Indication: SCHIZOAFFECTIVE DISORDER
     Route: 048
     Dates: end: 20100506
  12. PEPCID [Concomitant]
  13. CLOZAPINE [Suspect]
     Route: 048
     Dates: start: 20100511
  14. DILANTIN [Concomitant]
  15. DEPAKOTE [Concomitant]
  16. SIMVASTATIN [Concomitant]
  17. GEMFIBROZIL [Concomitant]

REACTIONS (1)
  - GRANULOCYTOPENIA [None]
